FAERS Safety Report 10195197 (Version 1)
Quarter: 2014Q2

REPORT INFORMATION
  Report Type: Spontaneous
  Country: BE (occurrence: BE)
  Receive Date: 20140526
  Receipt Date: 20140526
  Transmission Date: 20141212
  Serious: Yes (Death, Other)
  Sender: FDA-Public Use
  Company Number: BE-ELI_LILLY_AND_COMPANY-BE201405007022

PATIENT
  Sex: 0

DRUGS (1)
  1. GEMCITABINE HYDROCHLORIDE [Suspect]
     Indication: NEOPLASM
     Dosage: 1000 MG/M2, OTHER
     Route: 065

REACTIONS (2)
  - Death [Fatal]
  - Gastrointestinal haemorrhage [Unknown]
